FAERS Safety Report 24737585 (Version 2)
Quarter: 2025Q3

REPORT INFORMATION
  Report Type: Report from Study
  Country: US (occurrence: US)
  Receive Date: 20241216
  Receipt Date: 20250803
  Transmission Date: 20251020
  Serious: Yes (Other)
  Sender: ALEXION PHARMACEUTICALS
  Company Number: US-ALXN-A202313324AA

PATIENT
  Sex: Female

DRUGS (1)
  1. STRENSIQ [Suspect]
     Active Substance: ASFOTASE ALFA
     Route: 065

REACTIONS (8)
  - Multiple fractures [Unknown]
  - Osteoporosis [Unknown]
  - Bone density decreased [Unknown]
  - Skeletal injury [Unknown]
  - Fall [Unknown]
  - Diplopia [Unknown]
  - Coccydynia [Unknown]
  - Bone pain [Unknown]
